FAERS Safety Report 6526818-7 (Version None)
Quarter: 2009Q4

REPORT INFORMATION
  Report Type: 
  Country: None (occurrence: None)
  Receive Date: 20091230
  Receipt Date: 20091217
  Transmission Date: 20100525
  Serious: Yes (Other)
  Sender: FDA-Public Use
  Company Number: 1000010962

PATIENT
  Age: 75 Year
  Sex: Female

DRUGS (5)
  1. MEMANTINE HCL [Suspect]
     Indication: DEMENTIA ALZHEIMER'S TYPE
     Dosage: 40 MG (20 MG, 2 IN 1 D), ORAL
     Route: 048
     Dates: start: 20090428, end: 20090801
  2. AMERIDE (TABLETS) [Concomitant]
  3. DEPRAX (TABLETS) [Concomitant]
  4. EMCONCOR COR (2.5 MILLIGRAM, TABLETS) [Concomitant]
  5. REMINYL (TABLETS) [Concomitant]

REACTIONS (6)
  - ANXIETY [None]
  - DIZZINESS [None]
  - HEADACHE [None]
  - MALAISE [None]
  - OVERDOSE [None]
  - PANIC ATTACK [None]
